FAERS Safety Report 8863324 (Version 2)
Quarter: 2012Q4

REPORT INFORMATION
  Report Type: 
  Country: US (occurrence: US)
  Receive Date: 20121025
  Receipt Date: 20121109
  Transmission Date: 20130627
  Serious: Yes (Other)
  Sender: FDA-Public Use
  Company Number: US-ASTRAZENECA-2010SE15513

PATIENT
  Age: 79 Year
  Sex: Female

DRUGS (4)
  1. NEXIUM [Suspect]
     Indication: GASTROOESOPHAGEAL REFLUX DISEASE
     Route: 048
  2. NEXIUM [Suspect]
     Indication: GASTRIC PH DECREASED
     Route: 048
  3. NEXIUM [Suspect]
     Indication: ABDOMINAL DISCOMFORT
     Route: 048
  4. PLAVIX [Concomitant]

REACTIONS (11)
  - Cerebrovascular accident [Unknown]
  - Pain [Unknown]
  - Aphagia [Unknown]
  - Gastric disorder [Unknown]
  - Gastrooesophageal reflux disease [Unknown]
  - Diarrhoea [Unknown]
  - Malaise [Unknown]
  - Malaise [Unknown]
  - Dyspepsia [Unknown]
  - Off label use [Unknown]
  - Drug dose omission [Unknown]
